FAERS Safety Report 11106740 (Version 3)
Quarter: 2018Q1

REPORT INFORMATION
  Report Type: Spontaneous
  Country: FR (occurrence: FR)
  Receive Date: 20150512
  Receipt Date: 20180126
  Transmission Date: 20180508
  Serious: Yes (Other)
  Sender: FDA-Public Use
  Company Number: FR-OTSUKA-DJ201502940

PATIENT

DRUGS (4)
  1. CYMBALTA [Concomitant]
     Active Substance: DULOXETINE HYDROCHLORIDE
     Route: 065
  2. ABILIFY MAINTENA [Suspect]
     Active Substance: ARIPIPRAZOLE
     Dosage: 400 MG, QM
     Route: 065
     Dates: start: 20150327
  3. ARIPIPRAZOLE. [Suspect]
     Active Substance: ARIPIPRAZOLE
     Indication: SCHIZOPHRENIA
     Dosage: 20 MG, QD
     Route: 048
     Dates: end: 20150402
  4. TEMESTA (LORAZEPAM) [Concomitant]
     Active Substance: LORAZEPAM
     Route: 065

REACTIONS (3)
  - Drug administration error [Unknown]
  - Agitation [Unknown]
  - Psychotic disorder [Unknown]

NARRATIVE: CASE EVENT DATE: 20150331
